FAERS Safety Report 4989456-3 (Version None)
Quarter: 2006Q2

REPORT INFORMATION
  Report Type: 
  Country: None (occurrence: None)
  Receive Date: 20060426
  Receipt Date: 20060403
  Transmission Date: 20061013
  Serious: No
  Sender: FDA-Public Use
  Company Number: 20062852

PATIENT
  Sex: Male

DRUGS (1)
  1. LIORESAL [Suspect]
     Indication: MUSCLE SPASTICITY
     Dosage: 450 MCG, DAILY, INTRATHECAL
     Route: 037

REACTIONS (10)
  - CRYING [None]
  - DECREASED APPETITE [None]
  - DEPRESSION [None]
  - DEVICE INEFFECTIVE [None]
  - DYSTONIA [None]
  - HYPERSOMNIA [None]
  - IRRITABILITY [None]
  - LETHARGY [None]
  - MOOD ALTERED [None]
  - PSYCHOTIC DISORDER [None]
